FAERS Safety Report 11335156 (Version 1)
Quarter: 2015Q3

REPORT INFORMATION
  Report Type: Spontaneous
  Country: US (occurrence: US)
  Receive Date: 20150804
  Receipt Date: 20150804
  Transmission Date: 20151125
  Serious: No
  Sender: FDA-Public Use
  Company Number: US-BAYER-2015-386553

PATIENT
  Sex: Female

DRUGS (1)
  1. MIRENA [Suspect]
     Active Substance: LEVONORGESTREL
     Dosage: 20 MCG/24HR, CONT
     Route: 015
     Dates: start: 201506

REACTIONS (5)
  - Feeling hot [None]
  - Feeling abnormal [Not Recovered/Not Resolved]
  - Alopecia [None]
  - Headache [Not Recovered/Not Resolved]
  - Abdominal discomfort [None]
